FAERS Safety Report 19295717 (Version 1)
Quarter: 2021Q2

REPORT INFORMATION
  Report Type: Spontaneous
  Country: US (occurrence: US)
  Receive Date: 20210524
  Receipt Date: 20210524
  Transmission Date: 20210717
  Serious: Yes (Other)
  Sender: FDA-Public Use
  Company Number: US-PFIZER INC-2021534389

PATIENT
  Age: 60 Year
  Sex: Female

DRUGS (2)
  1. ORTHOVISC [Concomitant]
     Active Substance: HYALURONIC ACID
     Dosage: UNK
  2. XELJANZ XR [Suspect]
     Active Substance: TOFACITINIB CITRATE
     Indication: CHONDROCALCINOSIS PYROPHOSPHATE
     Dosage: 11 MG, DAILY
     Route: 048
     Dates: start: 202102

REACTIONS (4)
  - Off label use [Unknown]
  - Upper limb fracture [Not Recovered/Not Resolved]
  - Urinary tract infection [Unknown]
  - Fall [Unknown]

NARRATIVE: CASE EVENT DATE: 202102
